FAERS Safety Report 5619215-X (Version None)
Quarter: 2008Q1

REPORT INFORMATION
  Report Type: 
  Country: None (occurrence: None)
  Receive Date: 20080205
  Receipt Date: 20080122
  Transmission Date: 20080703
  Serious: Yes (Hospitalization)
  Sender: FDA-Public Use
  Company Number: 02100-JPN-05-0151

PATIENT
  Age: 68 Year
  Sex: Male

DRUGS (21)
  1. PLETAL [Suspect]
     Indication: CEREBRAL INFARCTION
     Dosage: 100 MG, BID; MG;ORAL, 81 MG QD
     Route: 048
     Dates: start: 20041015, end: 20041021
  2. PLETAL [Suspect]
     Indication: CEREBRAL INFARCTION
     Dosage: 100 MG, BID; MG;ORAL, 81 MG QD
     Route: 048
     Dates: start: 20041015, end: 20041021
  3. .. [Suspect]
  4. ZOLPIDEM TARTRATE [Concomitant]
  5. GLYCERIN (GLYCEROL) SUPPOSITORY [Concomitant]
  6. PURSENNID (SENNOSIDE) TABLET [Concomitant]
  7. PAXIL [Suspect]
     Indication: DEPRESSION
     Dosage: 20 MG, QD: ORAL
     Route: 048
     Dates: start: 20040525
  8. PAXIL [Suspect]
     Dosage: 30 MG;QD: ORAL
     Route: 048
     Dates: start: 20050421
  9. DEYSREL (TRAZODONE HYDROCHLORIDE) TABLET [Concomitant]
  10. BLOSTAR (FAMOTIDINE) TABLET [Concomitant]
  11. CONSTAN (ALPRAZOLAM) TABLET [Concomitant]
  12. LIVALO (PITAVASTATIN CALCIUM) TABLET [Concomitant]
  13. SOL-MELCORT (METHYLPREDNISOLONE SODIUM SUCCINATE) INJECTION [Concomitant]
  14. VOLTAREN [Concomitant]
  15. TIZANIDINE HCL [Concomitant]
  16. VANCOMIN (MECOBALAMIN) TABLET [Concomitant]
  17. PYRINAZIN (PARACETAMOL) POWDER [Concomitant]
  18. CATLEP (INDOMETACIN) TAPE [Concomitant]
  19. PANTOSIN (PANTETHINE) POWDER [Concomitant]
  20. HEAVY MAGNESIUM OXIDE (MAGNESIUM OXIDE) [Concomitant]
  21. AMLODIN QD (AMLODIPINE BESILATE) TABLET [Concomitant]

REACTIONS (15)
  - BLOOD CHLORIDE DECREASED [None]
  - BLOOD PRESSURE INCREASED [None]
  - BLOOD PRESSURE SYSTOLIC INCREASED [None]
  - BLOOD SODIUM DECREASED [None]
  - BRONCHITIS [None]
  - CERVICAL VERTEBRAL FRACTURE [None]
  - DYSPNOEA [None]
  - ELECTROLYTE IMBALANCE [None]
  - EPILEPSY [None]
  - FALL [None]
  - HEAD INJURY [None]
  - HEART RATE INCREASED [None]
  - MUSCLE SPASMS [None]
  - SPINAL CORD INJURY [None]
  - TACHYCARDIA [None]
